FAERS Safety Report 8765823 (Version 1)
Quarter: 2012Q4

REPORT INFORMATION
  Report Type: 
  Country: US (occurrence: US)
  Receive Date: 20120904
  Receipt Date: 20120904
  Transmission Date: 20130627
  Serious: No
  Sender: FDA-Public Use
  Company Number: US-PFIZER INC-2012214796

PATIENT
  Age: 44 Year
  Sex: Male
  Weight: 57 kg

DRUGS (1)
  1. MORPHINE SULFATE [Suspect]
     Indication: CHEST DISCOMFORT
     Dosage: UNK

REACTIONS (1)
  - Feeling abnormal [Unknown]
